FAERS Safety Report 8429346-7 (Version None)
Quarter: 2012Q2

REPORT INFORMATION
  Report Type: 
  Country: None (occurrence: None)
  Receive Date: 20120612
  Receipt Date: 20120530
  Transmission Date: 20120825
  Serious: No
  Sender: FDA-Public Use
  Company Number: US-ASTRAZENECA-2012SE35829

PATIENT
  Age: 65 Year
  Sex: Female

DRUGS (2)
  1. AMOXICILLIN [Concomitant]
     Indication: SINUSITIS
  2. CRESTOR [Suspect]
     Route: 048

REACTIONS (3)
  - EAR PAIN [None]
  - SINUSITIS [None]
  - HEARING IMPAIRED [None]
